FAERS Safety Report 5087903-2 (Version None)
Quarter: 2006Q3

REPORT INFORMATION
  Report Type: 
  Country: None (occurrence: None)
  Receive Date: 20060823
  Receipt Date: 20060823
  Transmission Date: 20061208
  Serious: Yes (Other)
  Sender: FDA-Public Use
  Company Number: None

PATIENT
  Age: 68 Year
  Sex: Female

DRUGS (2)
  1. FENOFIBRATE [Suspect]
     Indication: HYPERLIPIDAEMIA
     Dates: start: 20060723, end: 20060803
  2. VYTORIN [Concomitant]

REACTIONS (3)
  - BLOOD PRESSURE DECREASED [None]
  - DIZZINESS [None]
  - SYNCOPE [None]
